FAERS Safety Report 13014995 (Version 1)
Quarter: 2016Q4

REPORT INFORMATION
  Report Type: Spontaneous
  Country: JP (occurrence: JP)
  Receive Date: 20161210
  Receipt Date: 20161210
  Transmission Date: 20170207
  Serious: Yes (Hospitalization)
  Sender: FDA-Public Use
  Company Number: JP-ACCORD-046179

PATIENT
  Age: 60 Year
  Sex: Male

DRUGS (2)
  1. METHOTREXATE. [Suspect]
     Active Substance: METHOTREXATE
     Indication: RHEUMATOID ARTHRITIS
     Dosage: IN JUN-2007, RECEIVED 6 MG/WEEK AND IN NOV-2011, DOSE WAS 8 MG/WEEK
     Dates: start: 201111
  2. MIZORIBINE [Concomitant]
     Active Substance: MIZORIBINE
     Indication: RHEUMATOID ARTHRITIS
     Dosage: IN MARCH 2009, 100 MG/DAY AND IN NOVEMBER 2011, RECEIVED 8 MG/WEEK

REACTIONS (2)
  - Diffuse large B-cell lymphoma [Recovered/Resolved]
  - Drug ineffective [Unknown]
